FAERS Safety Report 7375510-8 (Version None)
Quarter: 2011Q1

REPORT INFORMATION
  Report Type: 
  Country: None (occurrence: None)
  Receive Date: 20110325
  Receipt Date: 20110317
  Transmission Date: 20110831
  Serious: Yes (Hospitalization)
  Sender: FDA-Public Use
  Company Number: GB-TEVA-272508ISR

PATIENT
  Age: 80 Year
  Sex: Female

DRUGS (1)
  1. WARFARIN [Suspect]
     Indication: ACUTE MYOCARDIAL INFARCTION

REACTIONS (12)
  - AORTIC DISSECTION [None]
  - INTERNATIONAL NORMALISED RATIO INCREASED [None]
  - ABDOMINAL MASS [None]
  - MALAISE [None]
  - LEFT VENTRICULAR FAILURE [None]
  - CHEST PAIN [None]
  - WEIGHT DECREASED [None]
  - DECREASED APPETITE [None]
  - HYPERTENSION [None]
  - DYSPNOEA [None]
  - MUSCULOSKELETAL CHEST PAIN [None]
  - BACK PAIN [None]
